FAERS Safety Report 10172116 (Version 1)
Quarter: 2014Q2

REPORT INFORMATION
  Report Type: Spontaneous
  Country: CA (occurrence: CA)
  Receive Date: 20140515
  Receipt Date: 20140515
  Transmission Date: 20141212
  Serious: Yes (Other)
  Sender: FDA-Public Use
  Company Number: CA-009507513-1405CAN006254

PATIENT
  Age: 63 Year
  Sex: Female

DRUGS (4)
  1. SINGULAIR [Suspect]
     Indication: ASTHMA
     Dosage: 10 MG, QD
     Route: 048
  2. ADVAIR [Concomitant]
     Dosage: 1 PUFF TWICE DAILY
     Route: 065
  3. AIROMIR [Concomitant]
     Dosage: 1 PUFF WHEN NEEDED
     Route: 065
  4. HERCEPTIN [Concomitant]
     Indication: BREAST CANCER
     Route: 065

REACTIONS (3)
  - Breast cancer [Unknown]
  - Sedation [Unknown]
  - Joint swelling [Unknown]
